FAERS Safety Report 15932455 (Version 4)
Quarter: 2020Q1

REPORT INFORMATION
  Report Type: Report from Study
  Country: KR (occurrence: KR)
  Receive Date: 20190207
  Receipt Date: 20200310
  Transmission Date: 20200409
  Serious: Yes (Other)
  Sender: FDA-Public Use
  Company Number: KR-BRISTOL-MYERS SQUIBB COMPANY-BMS-2018-116846

PATIENT
  Age: 47 Year
  Sex: Female
  Weight: 42 kg

DRUGS (20)
  1. CHLORPHENIRAMINE MALEATE. [Concomitant]
     Active Substance: CHLORPHENIRAMINE MALEATE
     Indication: PRODUCT USED FOR UNKNOWN INDICATION
     Dosage: 1 DOSAGE FORM=AMPOULE
     Route: 042
     Dates: start: 20181005, end: 20181005
  2. CHLORPHENIRAMINE MALEATE. [Concomitant]
     Active Substance: CHLORPHENIRAMINE MALEATE
     Indication: TRANSFUSION
     Dosage: 4 MILLIGRAM
     Route: 042
     Dates: start: 20180914, end: 20180915
  3. ULTRACET [Concomitant]
     Active Substance: ACETAMINOPHEN\TRAMADOL HYDROCHLORIDE
     Indication: ANALGESIC THERAPY
     Dosage: 2 DOSAGE FORM= TABLET
     Route: 048
     Dates: start: 20180914
  4. NESP [Concomitant]
     Active Substance: DARBEPOETIN ALFA
     Indication: ANAEMIA
     Dosage: 360 MICROGRAM
     Route: 058
     Dates: start: 20180920, end: 20180920
  5. NIVOLUMAB [Suspect]
     Active Substance: NIVOLUMAB
     Indication: PRODUCT USED FOR UNKNOWN INDICATION
     Dosage: 3 MILLIGRAM/KILOGRAM
     Route: 065
     Dates: start: 20180914, end: 20181013
  6. DENOGAN [Concomitant]
     Active Substance: PROPACETAMOL HYDROCHLORIDE
     Indication: PYREXIA
     Dosage: 1 DOSAGE FORM=VIAL
     Route: 042
     Dates: start: 20180915, end: 20180916
  7. SK ALBUMIN [Concomitant]
     Indication: PRODUCT USED FOR UNKNOWN INDICATION
     Dosage: 1 DOSAGE FORM=BOTTLE
     Route: 042
     Dates: start: 20180928, end: 20180928
  8. NIVOLUMAB [Suspect]
     Active Substance: NIVOLUMAB
     Indication: RENAL CELL CARCINOMA
     Dosage: 1 DOSAGE FORM= 150 (UNITS UNSPECIFIED) Q2WK
     Route: 041
     Dates: start: 20180914, end: 20180928
  9. NIVOLUMAB [Suspect]
     Active Substance: NIVOLUMAB
     Indication: PRODUCT USED FOR UNKNOWN INDICATION
     Dosage: 1 DOSAGE FORM (140 UNITS UNSPECIFIED)
     Route: 065
     Dates: start: 20181013, end: 20181013
  10. SK ALBUMIN [Concomitant]
     Indication: PARACENTESIS
     Dosage: 1 DOSAGE FORM=BOTTLE
     Route: 042
     Dates: start: 20180917, end: 20180917
  11. MECOBALAMIN [Concomitant]
     Active Substance: METHYLCOBALAMIN
     Indication: NEURALGIA
     Dosage: 1 DOSAGE FORM= TABLET
     Route: 048
     Dates: start: 20180914
  12. DIABEX [Concomitant]
     Active Substance: METFORMIN HYDROCHLORIDE
     Indication: BLOOD GLUCOSE ABNORMAL
     Dosage: 1 DOSAGE FORM=TABLET
     Route: 048
     Dates: start: 20180914
  13. SK ALBUMIN [Concomitant]
     Indication: PRODUCT USED FOR UNKNOWN INDICATION
     Dosage: 1 DOSAGE FORM
     Route: 042
     Dates: start: 20181013, end: 20181013
  14. CHLORPHENIRAMINE MALEATE. [Concomitant]
     Active Substance: CHLORPHENIRAMINE MALEATE
     Indication: PRODUCT USED FOR UNKNOWN INDICATION
     Dosage: 1 DOSAGE FORM=AMPOULE
     Route: 042
     Dates: start: 20180920, end: 20180920
  15. FOLIC ACID. [Concomitant]
     Active Substance: FOLIC ACID
     Indication: FOLATE DEFICIENCY
     Dosage: 1 DOSAGE FORM= TABLET
     Route: 048
     Dates: start: 20180914
  16. PETHIDINE [Concomitant]
     Active Substance: MEPERIDINE
     Indication: ANALGESIC THERAPY
     Dosage: 1 DOSAGE FORM=AMPOULE
     Route: 042
     Dates: start: 20180914, end: 20180914
  17. ALDACTONE [Concomitant]
     Active Substance: SPIRONOLACTONE
     Indication: ASCITES
     Dosage: 1 DOSAGE FORM=TABLET
     Route: 048
     Dates: start: 20180914, end: 20180916
  18. ALDACTONE [Concomitant]
     Active Substance: SPIRONOLACTONE
     Indication: PRODUCT USED FOR UNKNOWN INDICATION
     Dosage: 4 DOSAGE FORM=TABLET
     Route: 048
     Dates: start: 20180917
  19. LASIX [Concomitant]
     Active Substance: FUROSEMIDE
     Indication: ASCITES
     Dosage: 1 DOSAGE FORM=TABLET
     Route: 048
     Dates: start: 20180917
  20. ALDACTONE [Concomitant]
     Active Substance: SPIRONOLACTONE
     Indication: PRODUCT USED FOR UNKNOWN INDICATION
     Dosage: 4 DOSAGE FORM=TABLET
     Route: 048
     Dates: start: 20181005, end: 20181005

REACTIONS (4)
  - Malignant neoplasm progression [Not Recovered/Not Resolved]
  - Asthenia [Not Recovered/Not Resolved]
  - Thrombocytopenia [Not Recovered/Not Resolved]
  - Pyrexia [Recovered/Resolved]

NARRATIVE: CASE EVENT DATE: 20180914
